FAERS Safety Report 25107210 (Version 1)
Quarter: 2025Q1

REPORT INFORMATION
  Report Type: Report from Study
  Country: US (occurrence: US)
  Receive Date: 20250321
  Receipt Date: 20250321
  Transmission Date: 20250409
  Serious: Yes (Other)
  Sender: ELI LILLY AND COMPANY
  Company Number: US-ELI_LILLY_AND_COMPANY-US202411012642

PATIENT
  Sex: Female

DRUGS (2)
  1. KISUNLA [Suspect]
     Active Substance: DONANEMAB-AZBT
     Indication: Product used for unknown indication
     Route: 065
  2. KISUNLA [Suspect]
     Active Substance: DONANEMAB-AZBT
     Route: 065

REACTIONS (7)
  - Brain oedema [Unknown]
  - Cerebral haemorrhage [Unknown]
  - Visual impairment [Recovered/Resolved]
  - Vertigo [Recovered/Resolved]
  - Migraine [Recovered/Resolved]
  - Magnetic resonance imaging abnormal [Unknown]
  - Nausea [Recovered/Resolved]
